FAERS Safety Report 6268164-5 (Version None)
Quarter: 2009Q3

REPORT INFORMATION
  Report Type: 
  Country: None (occurrence: None)
  Receive Date: 20090713
  Receipt Date: 20090713
  Transmission Date: 20100115
  Serious: Yes (Hospitalization)
  Sender: FDA-Public Use
  Company Number: None

PATIENT
  Sex: Female
  Weight: 64 kg

DRUGS (1)
  1. CLOFARABINE [Suspect]
     Indication: NON-HODGKIN'S LYMPHOMA
     Dosage: 6.44 MG QD X 5 DAYS EVERY 28 DAYS IV
     Route: 042
     Dates: start: 20090622, end: 20090626

REACTIONS (5)
  - ANAEMIA [None]
  - CELLULITIS ORBITAL [None]
  - FEBRILE NEUTROPENIA [None]
  - PLATELET COUNT ABNORMAL [None]
  - STAPHYLOCOCCAL BACTERAEMIA [None]
